FAERS Safety Report 7237979-9 (Version None)
Quarter: 2011Q1

REPORT INFORMATION
  Report Type: 
  Country: None (occurrence: None)
  Receive Date: 20110121
  Receipt Date: 20110113
  Transmission Date: 20110831
  Serious: Yes (Hospitalization)
  Sender: FDA-Public Use
  Company Number: GXBR2011US00488

PATIENT
  Sex: Female

DRUGS (6)
  1. KLONOPIN [Concomitant]
     Indication: ANXIETY
     Dosage: 0.5MG QAM AND PRN
  2. SIMVASTATIN [Suspect]
     Indication: BLOOD CHOLESTEROL INCREASED
     Dosage: UNK
     Route: 048
  3. AMANTADINE HCL CAPSULES USP [Interacting]
     Indication: EXTRAPYRAMIDAL DISORDER
     Dosage: 100 MG, BID
     Route: 048
     Dates: start: 20101110, end: 20101201
  4. RISPERDAL [Concomitant]
     Indication: DELUSIONAL DISORDER, UNSPECIFIED TYPE
     Dosage: 0.5MG QAM, 1.5MG QPM
  5. HYDROCHLOROTHIAZIDE [Concomitant]
     Indication: HYPERTENSION
     Dosage: UNK
  6. CITALOPRAM HYDROBROMIDE [Concomitant]
     Indication: DEPRESSION
     Dosage: 10 MG, QHS

REACTIONS (4)
  - HALLUCINATION [None]
  - DRUG INTERACTION [None]
  - BLOOD URINE PRESENT [None]
  - CONVULSION [None]
